FAERS Safety Report 23643707 (Version 1)
Quarter: 2024Q1

REPORT INFORMATION
  Report Type: Spontaneous
  Country: GB (occurrence: GB)
  Receive Date: 20240318
  Receipt Date: 20240318
  Transmission Date: 20240409
  Serious: Yes (Hospitalization, Other)
  Sender: FDA-Public Use
  Company Number: None

PATIENT
  Age: 87 Year
  Sex: Female

DRUGS (8)
  1. LANSOPRAZOLE [Suspect]
     Active Substance: LANSOPRAZOLE
     Dosage: EACH MORNING
     Route: 065
  2. CALCIUM CARBONATE\SODIUM ALGINATE\SODIUM BICARBONATE [Concomitant]
     Active Substance: CALCIUM CARBONATE\SODIUM ALGINATE\SODIUM BICARBONATE
     Dosage: ONE OR TWO 5 ML SPOONFUL^S TO BE TAKEN AFTER MEALS?AND AT BEDTIME
  3. IBUPROFEN [Concomitant]
     Active Substance: IBUPROFEN
     Dosage: TIME INTERVAL: 0.33333333 DAYS
  4. AVEENO [Concomitant]
     Active Substance: DIMETHICONE\HOMOSALATE\OCTINOXATE\OCTISALATE\TITANIUM DIOXIDE
  5. RIVASTIGMINE [Concomitant]
     Active Substance: RIVASTIGMINE
     Dosage: APPLY ONE PATCH
  6. ZOPICLONE [Concomitant]
     Active Substance: ZOPICLONE
     Indication: Insomnia
     Dosage: TIME INTERVAL: AS NECESSARY: ONE TO BE TAKEN AT NIGHT
  7. CHOLECALCIFEROL [Concomitant]
     Active Substance: CHOLECALCIFEROL
     Dosage: ONE CAPSULE ONE HOUR AFTER A MEAL.
  8. ACETAMINOPHEN [Concomitant]
     Active Substance: ACETAMINOPHEN
     Dosage: TAKE TWO EVERY 4 - 6 HOURS.

REACTIONS (1)
  - Femoral neck fracture [Unknown]
